FAERS Safety Report 20858364 (Version 1)
Quarter: 2022Q2

REPORT INFORMATION
  Report Type: Spontaneous
  Country: US (occurrence: US)
  Receive Date: 20220521
  Receipt Date: 20220521
  Transmission Date: 20220721
  Serious: Yes (Hospitalization, Other)
  Sender: FDA-Public Use
  Company Number: US-Accord-263651

PATIENT
  Age: 92 Year
  Sex: Male

DRUGS (3)
  1. AZACITIDINE [Suspect]
     Active Substance: AZACITIDINE
     Indication: Acute myeloid leukaemia
     Dosage: 75 MG/M2 ON DAYS 1-7
     Route: 042
  2. VENETOCLAX [Suspect]
     Active Substance: VENETOCLAX
     Indication: Acute myeloid leukaemia
     Dosage: 400 MG DAILY ON DAYS 1-21
  3. MICAFUNGIN [Concomitant]
     Active Substance: MICAFUNGIN
     Indication: Prophylaxis

REACTIONS (5)
  - Cytopenia [Unknown]
  - Weight decreased [Unknown]
  - Fatigue [Unknown]
  - Nausea [Unknown]
  - Febrile neutropenia [Unknown]
